FAERS Safety Report 20348532 (Version 1)
Quarter: 2022Q1

REPORT INFORMATION
  Report Type: Spontaneous
  Country: TN (occurrence: TN)
  Receive Date: 20220119
  Receipt Date: 20220119
  Transmission Date: 20220423
  Serious: Yes (Other)
  Sender: FDA-Public Use
  Company Number: TN-SUN PHARMACEUTICAL INDUSTRIES LTD-2022RR-324191

PATIENT
  Age: 63 Year
  Sex: Male

DRUGS (4)
  1. CLOPIDOGREL [Suspect]
     Active Substance: CLOPIDOGREL BISULFATE
     Indication: Acute myocardial infarction
     Dosage: LOADING DOSE
     Route: 065
  2. ASPIRIN [Suspect]
     Active Substance: ASPIRIN
     Indication: Acute myocardial infarction
     Dosage: LOADING DOSE
     Route: 065
  3. STREPTOKINASE [Suspect]
     Active Substance: STREPTOKINASE
     Indication: Thrombolysis
     Dosage: 1.5 MILLION UNITS
     Route: 065
  4. HEPARIN [Suspect]
     Active Substance: HEPARIN SODIUM
     Indication: Anticoagulant therapy
     Dosage: CONTINUOUS INFUSION
     Route: 042

REACTIONS (2)
  - Dyspnoea [Recovered/Resolved]
  - Haemoptysis [Recovered/Resolved]
